FAERS Safety Report 11148340 (Version 3)
Quarter: 2016Q1

REPORT INFORMATION
  Report Type: Report from Study
  Country: JP (occurrence: JP)
  Receive Date: 20150529
  Receipt Date: 20160111
  Transmission Date: 20160525
  Serious: Yes (Other)
  Sender: FDA-Public Use
  Company Number: JP-SA-2015SA071180

PATIENT
  Age: 63 Year
  Sex: Male
  Weight: 70.8 kg

DRUGS (11)
  1. TAMIFLU [Suspect]
     Active Substance: OSELTAMIVIR PHOSPHATE
     Indication: PROPHYLAXIS
     Route: 048
     Dates: start: 20141226, end: 20150101
  2. DEXART [Concomitant]
     Active Substance: DEXAMETHASONE SODIUM PHOSPHATE
     Indication: PREMEDICATION
     Route: 042
     Dates: start: 20141209, end: 20141209
  3. KARY UNI [Concomitant]
     Active Substance: PIRENOXINE
     Dosage: OPHTHALMIC SUSPENSION.?FREQUENCY: TID (BOTH EYES)
     Route: 047
  4. JEVTANA [Suspect]
     Active Substance: CABAZITAXEL
     Indication: PROSTATE CANCER
     Route: 042
     Dates: start: 20141209, end: 20141209
  5. TIEPENEM [Suspect]
     Active Substance: CILASTATIN SODIUM\IMIPENEM
     Indication: PYREXIA
     Route: 042
     Dates: start: 20141217, end: 20141221
  6. GASTER [Concomitant]
     Active Substance: FAMOTIDINE
     Indication: PREMEDICATION
     Route: 042
     Dates: start: 20141209, end: 20141209
  7. JEVTANA [Suspect]
     Active Substance: CABAZITAXEL
     Indication: PROSTATE CANCER
     Route: 042
     Dates: start: 20141114, end: 20141114
  8. NIFLAN [Concomitant]
     Dosage: FORM:  OPHTHALMIC SOLUTION.?FREQUENCY: QID (LEFT EYE)
     Route: 047
  9. VENA [Concomitant]
     Active Substance: DIPHENHYDRAMINE HYDROCHLORIDE
     Indication: PREMEDICATION
     Route: 048
     Dates: start: 20141209, end: 20141209
  10. CRAVIT [Concomitant]
     Active Substance: LEVOFLOXACIN
     Dosage: FORM:  OPHTHALMIC SOLUTION.?FREQUENCY: QID (RIGHT EYE)
     Route: 047
  11. FLIVAS [Concomitant]
     Active Substance: NAFTOPIDIL
     Route: 048
     Dates: start: 20141118

REACTIONS (4)
  - Drug-induced liver injury [Recovered/Resolved]
  - White blood cell count decreased [Recovered/Resolved]
  - Liver disorder [Recovering/Resolving]
  - Pyrexia [Recovering/Resolving]

NARRATIVE: CASE EVENT DATE: 20141215
